FAERS Safety Report 23756839 (Version 2)
Quarter: 2024Q2

REPORT INFORMATION
  Report Type: Report from Study
  Country: CA (occurrence: CA)
  Receive Date: 20240418
  Receipt Date: 20240422
  Transmission Date: 20240716
  Serious: Yes (Other)
  Sender: FDA-Public Use
  Company Number: CA-002147023-PHHY2017CA061381

PATIENT
  Age: 33 Year
  Sex: Male

DRUGS (14)
  1. COSENTYX [Suspect]
     Active Substance: SECUKINUMAB
     Indication: Psoriatic arthropathy
     Dosage: 150 MG, QMO
     Route: 058
     Dates: start: 20170330
  2. COSENTYX [Suspect]
     Active Substance: SECUKINUMAB
     Dosage: 150 MG, QW
     Route: 058
     Dates: start: 20170420
  3. COSENTYX [Suspect]
     Active Substance: SECUKINUMAB
     Dosage: 150 MG, QMO
     Route: 058
     Dates: start: 20181027
  4. COSENTYX [Suspect]
     Active Substance: SECUKINUMAB
     Dosage: 150 MG, QMO
     Route: 058
     Dates: start: 20181127
  5. COSENTYX [Suspect]
     Active Substance: SECUKINUMAB
     Dosage: 150 MG, QMO
     Route: 058
  6. COSENTYX [Suspect]
     Active Substance: SECUKINUMAB
     Dosage: 300 MG, QMO
     Route: 065
  7. COSENTYX [Suspect]
     Active Substance: SECUKINUMAB
     Dosage: 150 MG, Q2W
     Route: 065
     Dates: start: 202402
  8. COSENTYX [Suspect]
     Active Substance: SECUKINUMAB
     Dosage: 150 MG, Q2W
     Route: 065
     Dates: start: 20240401
  9. METHOTREXATE [Concomitant]
     Active Substance: METHOTREXATE
     Indication: Product used for unknown indication
     Dosage: UNK
     Route: 065
     Dates: start: 2015, end: 2017
  10. HUMIRA [Concomitant]
     Active Substance: ADALIMUMAB
     Indication: Product used for unknown indication
     Dosage: UNK, Q2MO
     Route: 058
  11. TYLENOL [Concomitant]
     Active Substance: ACETAMINOPHEN
     Indication: Product used for unknown indication
     Dosage: UNK, PRN
     Route: 048
  12. TYLENOL [Concomitant]
     Active Substance: ACETAMINOPHEN
     Dosage: 500 MG
     Route: 065
     Dates: start: 20181123
  13. VOLTAREN [Concomitant]
     Active Substance: DICLOFENAC SODIUM
     Indication: Product used for unknown indication
     Dosage: UNK UNK, PRN
     Route: 061
  14. VITAMIN D [Concomitant]
     Active Substance: VITAMIN D NOS
     Indication: Product used for unknown indication
     Dosage: 2 DF, UNK
     Route: 065
     Dates: start: 20181123

REACTIONS (26)
  - Psoriatic arthropathy [Unknown]
  - Gait disturbance [Unknown]
  - Colitis ulcerative [Recovering/Resolving]
  - Abdominal distension [Recovering/Resolving]
  - Muscle spasms [Recovering/Resolving]
  - Gastrointestinal disorder [Not Recovered/Not Resolved]
  - Crohn^s disease [Recovering/Resolving]
  - Constipation [Recovering/Resolving]
  - Diarrhoea [Recovering/Resolving]
  - Abnormal faeces [Recovering/Resolving]
  - Inflammation [Unknown]
  - Tension [Unknown]
  - Pain [Unknown]
  - Arthritis [Not Recovered/Not Resolved]
  - C-reactive protein increased [Unknown]
  - Feeling hot [Unknown]
  - Alopecia [Unknown]
  - Tooth infection [Unknown]
  - Abdominal pain [Unknown]
  - Nasopharyngitis [Unknown]
  - Nasal congestion [Unknown]
  - Therapeutic response decreased [Unknown]
  - Off label use [Unknown]
  - Nausea [Unknown]
  - Dyspepsia [Unknown]
  - Malaise [Unknown]

NARRATIVE: CASE EVENT DATE: 20170420
